FAERS Safety Report 19143196 (Version 2)
Quarter: 2021Q2

REPORT INFORMATION
  Report Type: Report from Study
  Country: None (occurrence: DE)
  Receive Date: 20210416
  Receipt Date: 20210423
  Transmission Date: 20210717
  Serious: Yes (Hospitalization, Other)
  Sender: FDA-Public Use
  Company Number: DE-ABBVIE-21K-062-3855866-00

PATIENT
  Age: 53 Year
  Sex: Male
  Weight: 95 kg

DRUGS (4)
  1. MAGNESIUM [Concomitant]
     Active Substance: MAGNESIUM
     Indication: PRODUCT USED FOR UNKNOWN INDICATION
     Route: 065
  2. SKYRIZI [Suspect]
     Active Substance: RISANKIZUMAB-RZAA
     Indication: PSORIASIS
     Route: 058
  3. HUMIRA [Suspect]
     Active Substance: ADALIMUMAB
     Indication: PSORIASIS
     Route: 058
     Dates: start: 2017, end: 2018
  4. HUMIRA [Suspect]
     Active Substance: ADALIMUMAB
     Route: 058
     Dates: start: 20180619, end: 20190318

REACTIONS (23)
  - Skin lesion [Unknown]
  - Papule [Unknown]
  - Antinuclear antibody increased [Unknown]
  - Psoriatic arthropathy [Unknown]
  - Feeling cold [Unknown]
  - Wound complication [Unknown]
  - Lymphocyte count decreased [Unknown]
  - Scoliosis [Unknown]
  - Pyrexia [Unknown]
  - Muscle spasms [Unknown]
  - Arthralgia [Unknown]
  - Monocyte count increased [Unknown]
  - Weight decreased [Unknown]
  - Intervertebral disc degeneration [Unknown]
  - Pulmonary hilar enlargement [Unknown]
  - Borrelia test positive [Unknown]
  - Paradoxical drug reaction [Unknown]
  - Drug intolerance [Unknown]
  - General physical health deterioration [Recovering/Resolving]
  - Complement factor C3 decreased [Unknown]
  - Lupus-like syndrome [Not Recovered/Not Resolved]
  - Platelet count decreased [Unknown]
  - Rash [Not Recovered/Not Resolved]

NARRATIVE: CASE EVENT DATE: 2015
